FAERS Safety Report 10429543 (Version 1)
Quarter: 2014Q3

REPORT INFORMATION
  Report Type: Spontaneous
  Country: US (occurrence: None)
  Receive Date: 20140902
  Receipt Date: 20140902
  Transmission Date: 20150326
  Serious: Yes (Hospitalization)
  Sender: FDA-Public Use
  Company Number: None

PATIENT
  Age: 75 Year
  Sex: Female

DRUGS (1)
  1. FORTEO [Suspect]
     Active Substance: TERIPARATIDE
     Indication: OSTEOPOROSIS
     Route: 058
     Dates: start: 20140618, end: 20140818

REACTIONS (7)
  - Blood potassium decreased [None]
  - Abdominal pain upper [None]
  - Eructation [None]
  - Vomiting [None]
  - Diarrhoea [None]
  - Dehydration [None]
  - Clostridium difficile infection [None]

NARRATIVE: CASE EVENT DATE: 20140816
